FAERS Safety Report 11366287 (Version 1)
Quarter: 2015Q3

REPORT INFORMATION
  Report Type: Spontaneous
  Country: CA (occurrence: CA)
  Receive Date: 20150811
  Receipt Date: 20150811
  Transmission Date: 20151125
  Serious: Yes (Life-Threatening, Other)
  Sender: FDA-Public Use
  Company Number: CA-ABBVIE-15P-028-1442984-00

PATIENT
  Age: 38 Year
  Sex: Male
  Weight: 68.1 kg

DRUGS (2)
  1. KLACID XL [Suspect]
     Active Substance: CLARITHROMYCIN
     Indication: BRONCHITIS
     Route: 065
  2. KLACID XL [Suspect]
     Active Substance: CLARITHROMYCIN
     Indication: SINUSITIS
     Dosage: 2 DOSES
     Route: 065

REACTIONS (5)
  - Suicidal ideation [Not Recovered/Not Resolved]
  - Bipolar disorder [Not Recovered/Not Resolved]
  - Confusional state [Not Recovered/Not Resolved]
  - Affect lability [Not Recovered/Not Resolved]
  - Disturbance in attention [Not Recovered/Not Resolved]
